FAERS Safety Report 4536028-0 (Version None)
Quarter: 2005Q1

REPORT INFORMATION
  Report Type: 
  Country: None (occurrence: None)
  Receive Date: 20041216
  Receipt Date: 20031028
  Transmission Date: 20050727
  Serious: Yes (Hospitalization, Other)
  Sender: FDA-Public Use
  Company Number: HQWYE440102SEP03

PATIENT
  Age: 31 Year
  Sex: Female
  Weight: 86.26 kg

DRUGS (2)
  1. EFFEXOR XR [Suspect]
     Indication: ANXIETY
     Dosage: 150 MG 1X PER 1 DAY, ORAL
     Route: 048
     Dates: start: 20030810, end: 20030801
  2. EFFEXOR XR [Suspect]
     Indication: DEPRESSION
     Dosage: 150 MG 1X PER 1 DAY, ORAL
     Route: 048
     Dates: start: 20030810, end: 20030801

REACTIONS (1)
  - HEPATIC FAILURE [None]
